FAERS Safety Report 25453520 (Version 2)
Quarter: 2025Q3

REPORT INFORMATION
  Report Type: Report from Study
  Country: US (occurrence: US)
  Receive Date: 20250619
  Receipt Date: 20250803
  Transmission Date: 20251021
  Serious: Yes (Other)
  Sender: JOHNSON AND JOHNSON
  Company Number: US-JNJFOC-20250613825

PATIENT
  Age: 30 Year
  Sex: Female

DRUGS (1)
  1. SPRAVATO [Suspect]
     Active Substance: ESKETAMINE
     Indication: Depression
     Dosage: ^56 MG, 1 TOTAL DOSE^
     Route: 045
     Dates: start: 20250610, end: 20250610

REACTIONS (11)
  - Urinary retention [Recovered/Resolved]
  - Upper-airway cough syndrome [Recovered/Resolved with Sequelae]
  - Vomiting [Recovered/Resolved with Sequelae]
  - Feeling drunk [Recovered/Resolved]
  - Dissociation [Recovered/Resolved with Sequelae]
  - Anxiety [Recovered/Resolved with Sequelae]
  - Somnolence [Recovered/Resolved]
  - Gait inability [Recovered/Resolved with Sequelae]
  - Depression [Not Recovered/Not Resolved]
  - Aphasia [Recovered/Resolved with Sequelae]
  - Hyperventilation [Recovered/Resolved]

NARRATIVE: CASE EVENT DATE: 20250610
